FAERS Safety Report 7012350-3 (Version None)
Quarter: 2010Q3

REPORT INFORMATION
  Report Type: 
  Country: None (occurrence: None)
  Receive Date: 20100924
  Receipt Date: 20100917
  Transmission Date: 20110219
  Serious: Yes (Other)
  Sender: FDA-Public Use
  Company Number: PHHY2008BR17468

PATIENT
  Sex: Male
  Weight: 59 kg

DRUGS (5)
  1. EXELON [Suspect]
     Indication: MEMORY IMPAIRMENT
     Dosage: 9MG/5CM2, DAILY
     Route: 062
  2. EXELON [Suspect]
     Indication: CENTRAL NERVOUS SYSTEM LESION
     Dosage: 18MG/10CM2, UNK
     Route: 062
     Dates: start: 20090501
  3. EXELON [Suspect]
     Dosage: 27MG/15CM2
     Route: 062
  4. MEMANTINE HYDROCHLORIDE [Concomitant]
     Indication: MEMORY IMPAIRMENT
     Dosage: ONCE PER DAY
     Route: 048
  5. GINKGO BILOBA [Concomitant]
     Indication: MEMORY IMPAIRMENT
     Dosage: ONCE PER DAY
     Route: 048

REACTIONS (8)
  - APPLICATION SITE ERYTHEMA [None]
  - APPLICATION SITE HYPERSENSITIVITY [None]
  - APPLICATION SITE PRURITUS [None]
  - DECREASED APPETITE [None]
  - DRUG INEFFECTIVE [None]
  - HALLUCINATION [None]
  - NIGHTMARE [None]
  - PRODUCT ADHESION ISSUE [None]
